FAERS Safety Report 21163468 (Version 1)
Quarter: 2022Q3

REPORT INFORMATION
  Report Type: Spontaneous
  Country: RU (occurrence: None)
  Receive Date: 20220802
  Receipt Date: 20220802
  Transmission Date: 20221026
  Serious: Yes (Hospitalization, Other)
  Sender: FDA-Public Use
  Company Number: 2022A268649

PATIENT
  Age: 71 Year
  Sex: Male
  Weight: 70 kg

DRUGS (10)
  1. BRILINTA [Suspect]
     Active Substance: TICAGRELOR
     Indication: Acute myocardial infarction
     Route: 048
     Dates: start: 20220519, end: 20220716
  2. BRILINTA [Suspect]
     Active Substance: TICAGRELOR
     Indication: Arterial stent insertion
     Route: 048
     Dates: start: 20220519, end: 20220716
  3. ASPIRIN [Concomitant]
     Active Substance: ASPIRIN
     Dates: start: 20220519
  4. OMEPRAZOLE [Concomitant]
     Active Substance: OMEPRAZOLE
     Dates: start: 20220519
  5. ATORVASTATIN [Concomitant]
     Active Substance: ATORVASTATIN
     Dosage: 8 MG
     Dates: start: 20220519
  6. METOPROLOL [Concomitant]
     Active Substance: METOPROLOL
     Dosage: 12.5 MG
     Dates: start: 20220519
  7. TORSEMIDE [Concomitant]
     Active Substance: TORSEMIDE
     Dosage: 5 MG
     Dates: start: 20220519
  8. SPIRONOLACTONE [Concomitant]
     Active Substance: SPIRONOLACTONE
     Dosage: 25 MG
     Dates: start: 20220519
  9. PERINDOPRIL [Concomitant]
     Active Substance: PERINDOPRIL
     Dosage: 4 MG
     Dates: start: 20220519
  10. EFFIENT [Concomitant]
     Active Substance: PRASUGREL HYDROCHLORIDE
     Dates: start: 20220716

REACTIONS (2)
  - Myocardial infarction [Recovering/Resolving]
  - Vascular stent thrombosis [Recovering/Resolving]
